FAERS Safety Report 10914489 (Version 1)
Quarter: 2015Q1

REPORT INFORMATION
  Report Type: Spontaneous
  Country: US (occurrence: None)
  Receive Date: 20150311
  Receipt Date: 20150311
  Transmission Date: 20150721
  Serious: Yes (Hospitalization)
  Sender: FDA-Public Use
  Company Number: 2015ILOUS001338

PATIENT
  Age: 3 Year
  Sex: Female

DRUGS (1)
  1. FANAPT [Suspect]
     Active Substance: ILOPERIDONE
     Indication: ACCIDENTAL EXPOSURE TO PRODUCT BY CHILD

REACTIONS (8)
  - Ataxia [None]
  - Tachycardia [None]
  - Blood bicarbonate decreased [None]
  - Blood lactic acid increased [None]
  - Lethargy [None]
  - Accidental overdose [None]
  - Electrocardiogram QT prolonged [None]
  - Mental status changes [None]
